FAERS Safety Report 17536813 (Version 2)
Quarter: 2020Q2

REPORT INFORMATION
  Report Type: Spontaneous
  Country: JP (occurrence: JP)
  Receive Date: 20200313
  Receipt Date: 20200610
  Transmission Date: 20200713
  Serious: Yes (Other)
  Sender: FDA-Public Use
  Company Number: JP-B.I. PHARMACEUTICALS,INC./RIDGEFIELD-2020-NB-014336

PATIENT
  Age: 80 Year
  Sex: Male

DRUGS (2)
  1. GILOTRIF [Suspect]
     Active Substance: AFATINIB
     Indication: LUNG ADENOCARCINOMA
     Route: 065
  2. GILOTRIF [Suspect]
     Active Substance: AFATINIB
     Route: 065

REACTIONS (5)
  - Stomatitis [Unknown]
  - Metastases to central nervous system [Unknown]
  - Renal impairment [Unknown]
  - Malignant neoplasm progression [Unknown]
  - Hepatic function abnormal [Unknown]
